FAERS Safety Report 9791698 (Version 2)
Quarter: 2014Q1

REPORT INFORMATION
  Report Type: Spontaneous
  Country: US (occurrence: US)
  Receive Date: 20140102
  Receipt Date: 20140103
  Transmission Date: 20141002
  Serious: Yes (Death, Hospitalization)
  Sender: FDA-Public Use
  Company Number: US-009507513-1312USA012598

PATIENT
  Sex: Male

DRUGS (1)
  1. NOXAFIL [Suspect]
     Dosage: UNK
     Route: 048

REACTIONS (1)
  - Adverse event [Fatal]
